FAERS Safety Report 8177685-X (Version None)
Quarter: 2012Q1

REPORT INFORMATION
  Report Type: 
  Country: None (occurrence: None)
  Receive Date: 20120301
  Receipt Date: 20120224
  Transmission Date: 20120608
  Serious: Yes (Other)
  Sender: FDA-Public Use
  Company Number: PHHY2012AU017403

PATIENT
  Sex: Female

DRUGS (1)
  1. ZOLEDRONOC ACID [Suspect]
     Indication: OSTEOPOROSIS
     Dosage: 5 MG, UNK
     Route: 042
     Dates: start: 20110217

REACTIONS (6)
  - PAIN [None]
  - MALAISE [None]
  - THYROID DISORDER [None]
  - PHARYNGEAL OEDEMA [None]
  - INFLUENZA LIKE ILLNESS [None]
  - CHILLS [None]
